FAERS Safety Report 21504052 (Version 1)
Quarter: 2022Q4

REPORT INFORMATION
  Report Type: Spontaneous
  Country: US (occurrence: None)
  Receive Date: 20221025
  Receipt Date: 20221025
  Transmission Date: 20230113
  Serious: Yes (Hospitalization)
  Sender: FDA-Public Use
  Company Number: None

PATIENT
  Age: 45 Year
  Sex: Female
  Weight: 62.5 kg

DRUGS (2)
  1. AZATHIOPRINE [Suspect]
     Active Substance: AZATHIOPRINE
     Indication: Systemic lupus erythematosus
     Dosage: FREQUENCY : DAILY;?
     Route: 048
     Dates: start: 20220813
  2. RITUXIMAB [Concomitant]
     Active Substance: RITUXIMAB
     Dates: start: 20220902

REACTIONS (1)
  - Tremor [None]

NARRATIVE: CASE EVENT DATE: 20220903
